FAERS Safety Report 22942949 (Version 5)
Quarter: 2024Q1

REPORT INFORMATION
  Report Type: Spontaneous
  Country: FR (occurrence: FR)
  Receive Date: 20230914
  Receipt Date: 20240328
  Transmission Date: 20240409
  Serious: Yes (Hospitalization, Other)
  Sender: FDA-Public Use
  Company Number: FR-AFSSAPS-TO2023001488

PATIENT
  Age: 61 Year
  Sex: Male

DRUGS (51)
  1. LANSOPRAZOLE [Suspect]
     Active Substance: LANSOPRAZOLE
     Indication: Product used for unknown indication
     Dosage: 1 DOSAGE FORM, ONCE A DAY (IN THE EVENING)
     Route: 065
  2. MAGNESIUM [Suspect]
     Active Substance: MAGNESIUM
     Indication: Product used for unknown indication
     Dosage: 2 DOSAGE FORM, ONCE A DAY (2 SACHETS IN THE MORNING(
     Route: 065
  3. PANTOPRAZOLE SODIUM [Suspect]
     Active Substance: PANTOPRAZOLE SODIUM
     Indication: Product used for unknown indication
     Dosage: 20 MILLIGRAM, ONCE A DAY
     Route: 048
  4. PREDNISONE [Suspect]
     Active Substance: PREDNISONE
     Indication: Lung transplant rejection
     Dosage: 7.5 MILLIGRAM, ONCE A DAY
     Route: 065
  5. PREDNISONE [Suspect]
     Active Substance: PREDNISONE
     Dosage: 10 MILLIGRAM, ONCE A DAY
     Route: 065
  6. PREDNISONE [Suspect]
     Active Substance: PREDNISONE
     Dosage: 5 MILLIGRAM, ONCE A DAY
     Route: 065
  7. PREDNISONE [Suspect]
     Active Substance: PREDNISONE
     Dosage: 12.5 MILLIGRAM, ONCE A DAY
     Route: 065
  8. PREDNISONE [Suspect]
     Active Substance: PREDNISONE
     Dosage: 25 MILLIGRAM, ONCE A DAY
     Route: 065
     Dates: start: 202304
  9. ROSUVASTATIN [Suspect]
     Active Substance: ROSUVASTATIN
     Indication: Product used for unknown indication
     Dosage: 10 MILLIGRAM, ONCE A DAY
     Route: 048
  10. VALGANCICLOVIR [Suspect]
     Active Substance: VALGANCICLOVIR
     Indication: Antiviral prophylaxis
     Dosage: 450 MILLIGRAM
     Route: 065
     Dates: start: 202304, end: 20230629
  11. AMOXICILLIN\CLAVULANATE POTASSIUM [Suspect]
     Active Substance: AMOXICILLIN\CLAVULANATE POTASSIUM
     Indication: Product used for unknown indication
     Dosage: UNK
     Route: 065
     Dates: start: 20230309, end: 20230313
  12. APIXABAN [Suspect]
     Active Substance: APIXABAN
     Indication: Product used for unknown indication
     Dosage: 1, DOSAGE FORM IN MORNING AND EVENING
     Route: 065
  13. CALCIUM CARBONATE\CHOLECALCIFEROL\PHYTONADIONE [Suspect]
     Active Substance: CALCIUM CARBONATE\CHOLECALCIFEROL\PHYTONADIONE
     Indication: Product used for unknown indication
     Dosage: UNK (500MG/400UI: 1 SACHET IN THE MORNING)
     Route: 065
  14. CASPOFUNGIN [Suspect]
     Active Substance: CASPOFUNGIN
     Indication: Product used for unknown indication
     Dosage: UNK
     Route: 065
     Dates: start: 20230309
  15. CELLCEPT [Suspect]
     Active Substance: MYCOPHENOLATE MOFETIL
     Indication: Lung transplant rejection
     Dosage: UNK
     Route: 065
     Dates: start: 202304, end: 202306
  16. CELLCEPT [Suspect]
     Active Substance: MYCOPHENOLATE MOFETIL
     Dosage: UNK
     Route: 065
     Dates: start: 202306
  17. CERTICAN [Suspect]
     Active Substance: EVEROLIMUS
     Indication: Lung transplant rejection
     Dosage: 1 MILLIGRAM, MORNING AND EVENING
     Route: 065
  18. CERTICAN [Suspect]
     Active Substance: EVEROLIMUS
     Dosage: 1.5 MILLIGRAM, MORNING AND EVENING
     Route: 065
     Dates: start: 20230415
  19. CERTICAN [Suspect]
     Active Substance: EVEROLIMUS
     Dosage: UNK
     Route: 065
     Dates: start: 202304
  20. CYCLOSPORINE [Suspect]
     Active Substance: CYCLOSPORINE
     Indication: Product used for unknown indication
     Dosage: UNK
     Route: 065
     Dates: start: 20230309, end: 20230313
  21. CYCLOSPORINE [Suspect]
     Active Substance: CYCLOSPORINE
     Dosage: UNK
     Route: 065
     Dates: start: 20230329
  22. PREDNISONE [Suspect]
     Active Substance: PREDNISONE
     Indication: Lung transplant rejection
     Dosage: 5 MILLIGRAM, ONCE A DAY
     Route: 065
  23. PREDNISONE [Suspect]
     Active Substance: PREDNISONE
     Dosage: 25 MILLIGRAM, ONCE A DAY
     Route: 065
     Dates: start: 202304
  24. PREDNISONE [Suspect]
     Active Substance: PREDNISONE
     Dosage: 7.5 MILLIGRAM, ONCE A DAY
     Route: 065
     Dates: start: 202304
  25. PREDNISONE [Suspect]
     Active Substance: PREDNISONE
     Dosage: 12.5 MILLIGRAM, ONCE A DAY
     Route: 065
     Dates: start: 202304
  26. PREDNISONE [Suspect]
     Active Substance: PREDNISONE
     Dosage: 10 MILLIGRAM, ONCE A DAY
     Route: 065
     Dates: start: 202304
  27. CRESTOR [Suspect]
     Active Substance: ROSUVASTATIN CALCIUM
     Indication: Product used for unknown indication
     Dosage: 10 MILLIGRAM, ONCE A DAY IN THE EVENING
     Route: 048
  28. ELIQUIS [Suspect]
     Active Substance: APIXABAN
     Indication: Product used for unknown indication
     Dosage: 1 DOSAGE FORM, TWO TIMES A DAY ( (1 DOSAGE FORM IN MORNING AND EVENIN))
     Route: 065
  29. GANCICLOVIR SODIUM [Suspect]
     Active Substance: GANCICLOVIR SODIUM
     Indication: Product used for unknown indication
     Dosage: UNK
     Route: 065
     Dates: start: 20230309, end: 20230813
  30. LEUCOVORIN CALCIUM [Suspect]
     Active Substance: LEUCOVORIN CALCIUM
     Indication: Product used for unknown indication
     Dosage: 5 MILLIGRAM (5 MILLIGRAM, 5 MG,MONDAY, WEDNESDAY,FRIDAY)
     Route: 065
  31. METHYLPREDNISOLONE [Suspect]
     Active Substance: METHYLPREDNISOLONE
     Indication: Product used for unknown indication
     Dosage: UNK
     Route: 065
     Dates: start: 20230309, end: 20230313
  32. MYCOPHENOLATE MOFETIL [Suspect]
     Active Substance: MYCOPHENOLATE MOFETIL
     Indication: Lung transplant rejection
     Dosage: 1 DOSAGE FORM, TWO TIMES A DAY
     Route: 065
     Dates: start: 202304
  33. MYCOPHENOLATE MOFETIL [Suspect]
     Active Substance: MYCOPHENOLATE MOFETIL
     Indication: Lung transplant rejection
     Dosage: UNK
     Route: 065
     Dates: start: 202306
  34. MYCOPHENOLATE MOFETIL [Suspect]
     Active Substance: MYCOPHENOLATE MOFETIL
     Dosage: UNK
     Route: 065
     Dates: start: 202304, end: 202306
  35. PENTACARINAT [Suspect]
     Active Substance: PENTAMIDINE ISETHIONATE
     Indication: Product used for unknown indication
     Dosage: 300 MILLIGRAM, 1 MONTH
     Route: 065
     Dates: start: 20230712
  36. PROGRAF [Suspect]
     Active Substance: TACROLIMUS
     Indication: Lung transplant rejection
     Dosage: 2 MILLIGRAM
     Route: 065
  37. PROGRAF [Suspect]
     Active Substance: TACROLIMUS
     Dosage: 4 MILLIGRAM,( 4MG 2X/YR)
     Route: 065
     Dates: start: 202304
  38. PROGRAF [Suspect]
     Active Substance: TACROLIMUS
     Dosage: 3 MILLIGRMS, TWO TIMES A DAY (MORNING AND EVENING))
     Route: 065
     Dates: start: 202304
  39. PROGRAF [Suspect]
     Active Substance: TACROLIMUS
     Dosage: 8 MILLIGRAM, ONCE A DAY
     Route: 065
  40. PROGRAF [Suspect]
     Active Substance: TACROLIMUS
     Dosage: 6 MILLIGRAM, ONCE A DAY
     Route: 065
  41. OLODATEROL HYDROCHLORIDE\TIOTROPIUM BROMIDE MONOHYDRATE [Suspect]
     Active Substance: OLODATEROL HYDROCHLORIDE\TIOTROPIUM BROMIDE MONOHYDRATE
     Indication: Product used for unknown indication
     Dosage: UNK UNK, ONCE A DAY, 2 PUFFS/D
  42. SOTALOL HYDROCHLORIDE [Suspect]
     Active Substance: SOTALOL HYDROCHLORIDE
     Indication: Product used for unknown indication
     Dosage: 0.5 MILLIGRAM (0.5 DOSAGE FORM (1/2 TABLET MORNING AND EVENING))
     Route: 065
  43. TACROLIMUS [Suspect]
     Active Substance: TACROLIMUS
     Indication: Lung transplant rejection
     Dosage: 3 MILLIGRAM, MORNING AND EVENING
     Route: 065
  44. TACROLIMUS [Suspect]
     Active Substance: TACROLIMUS
     Dosage: 2 MILLIGRAM, MORNING AND EVENING
     Route: 065
  45. TACROLIMUS [Suspect]
     Active Substance: TACROLIMUS
     Dosage: 8 MILLIGRAM, ONCE A DAY
     Route: 065
     Dates: start: 202304
  46. VITAMIN D3 [Suspect]
     Active Substance: CHOLECALCIFEROL
     Indication: Product used for unknown indication
     Dosage: 1 DOSAGE FORM, ONCE A DAY (500MG/400UI: 1 SACHET IN THE MORNING)
     Route: 065
  47. ZIEXTENZO [Suspect]
     Active Substance: PEGFILGRASTIM-BMEZ
     Indication: Product used for unknown indication
     Dosage: UNK, EVERY 6 WEEKS
     Route: 065
     Dates: start: 20230527
  48. SIMULECT [Suspect]
     Active Substance: BASILIXIMAB
     Indication: Product used for unknown indication
     Dosage: UNK
     Route: 065
     Dates: start: 20230309, end: 20230313
  49. AMOXICILLIN\CLAVULANATE POTASSIUM [Suspect]
     Active Substance: AMOXICILLIN\CLAVULANATE POTASSIUM
     Indication: Product used for unknown indication
     Dosage: UNK
     Route: 065
     Dates: start: 20230309, end: 20230313
  50. MAGNESIUM [Suspect]
     Active Substance: MAGNESIUM
     Indication: Product used for unknown indication
     Dosage: 2 DOSAGE FORM, ONCE A DAY (ONCE A DAY (2 SACHETS IN THE MORNING))
     Route: 065
  51. PEGFILGRASTIM [Suspect]
     Active Substance: PEGFILGRASTIM
     Indication: Product used for unknown indication
     Dosage: UNK, EVERY 6 WEEKS
     Route: 065
     Dates: start: 20230527

REACTIONS (3)
  - Neutropenia [Recovering/Resolving]
  - Stenotrophomonas infection [Recovered/Resolved]
  - Off label use [Unknown]

NARRATIVE: CASE EVENT DATE: 20230530
